FAERS Safety Report 7244516-1 (Version None)
Quarter: 2011Q1

REPORT INFORMATION
  Report Type: 
  Country: None (occurrence: None)
  Receive Date: 20110125
  Receipt Date: 20110105
  Transmission Date: 20110831
  Serious: Yes (Hospitalization)
  Sender: FDA-Public Use
  Company Number: PHHY2011JP02596

PATIENT
  Age: 31 Year
  Sex: Female

DRUGS (2)
  1. CYCLOSPORINE [Suspect]
     Indication: HEART TRANSPLANT
     Dosage: UNK
     Route: 048
  2. PREDNISOLONE [Concomitant]
     Indication: HEART TRANSPLANT
     Route: 048

REACTIONS (1)
  - OSTEITIS [None]
